FAERS Safety Report 25532267 (Version 1)
Quarter: 2025Q3

REPORT INFORMATION
  Report Type: Spontaneous
  Country: EU (occurrence: EU)
  Receive Date: 20250709
  Receipt Date: 20250709
  Transmission Date: 20251020
  Serious: Yes (Disabling)
  Sender: NOVO NORDISK
  Company Number: None

PATIENT
  Age: 57 Year
  Sex: Male
  Weight: 76 kg

DRUGS (2)
  1. RYBELSUS [Suspect]
     Active Substance: SEMAGLUTIDE
     Indication: Obesity
  2. RYBELSUS [Suspect]
     Active Substance: SEMAGLUTIDE
     Indication: Diabetes mellitus
     Dosage: 14 MG, QD
     Dates: start: 20231002, end: 20250516

REACTIONS (1)
  - Vitreous floaters [Not Recovered/Not Resolved]

NARRATIVE: CASE EVENT DATE: 20250516
